FAERS Safety Report 25102201 (Version 1)
Quarter: 2025Q1

REPORT INFORMATION
  Report Type: Spontaneous
  Country: US (occurrence: US)
  Receive Date: 20250320
  Receipt Date: 20250320
  Transmission Date: 20250409
  Serious: No
  Sender: MERCK SHARP & DOHME LLC
  Company Number: US-009507513-2263345

PATIENT
  Age: 77 Year
  Sex: Female
  Weight: 54.4 kg

DRUGS (28)
  1. WINREVAIR [Suspect]
     Active Substance: SOTATERCEPT-CSRK
     Indication: Product used for unknown indication
     Route: 065
     Dates: start: 20241223
  2. WINREVAIR [Suspect]
     Active Substance: SOTATERCEPT-CSRK
  3. WINREVAIR [Suspect]
     Active Substance: SOTATERCEPT-CSRK
  4. WINREVAIR [Suspect]
     Active Substance: SOTATERCEPT-CSRK
  5. REMODULIN [Suspect]
     Active Substance: TREPROSTINIL
     Indication: Pulmonary arterial hypertension
     Route: 058
     Dates: start: 20200921
  6. REMODULIN [Suspect]
     Active Substance: TREPROSTINIL
     Indication: Pulmonary arterial hypertension
     Route: 058
     Dates: start: 20200921
  7. FLUTICASONE PROPIONATE [Concomitant]
     Active Substance: FLUTICASONE PROPIONATE
  8. PEPCID [Concomitant]
     Active Substance: FAMOTIDINE
  9. POTASSIUM CHLORIDE [Concomitant]
     Active Substance: POTASSIUM CHLORIDE
  10. TYLENOL [Concomitant]
     Active Substance: ACETAMINOPHEN
  11. TADALAFIL [Concomitant]
     Active Substance: TADALAFIL
  12. MAGNESIUM [Concomitant]
     Active Substance: MAGNESIUM
  13. VITAMIN D3 [Concomitant]
     Active Substance: CHOLECALCIFEROL
  14. PROPRANOLOL HYDROCHLORIDE [Concomitant]
     Active Substance: PROPRANOLOL HYDROCHLORIDE
  15. ATORVASTATIN CALCIUM [Concomitant]
     Active Substance: ATORVASTATIN CALCIUM
  16. OPSUMIT [Concomitant]
     Active Substance: MACITENTAN
  17. CORTISONE ACETATE [Concomitant]
     Active Substance: CORTISONE ACETATE
  18. BUMETANIDE [Concomitant]
     Active Substance: BUMETANIDE
  19. TUMS [Concomitant]
     Active Substance: CALCIUM CARBONATE
  20. VITAMIN B12 [Concomitant]
     Active Substance: CYANOCOBALAMIN
  21. IRON [Concomitant]
     Active Substance: IRON
  22. RECLAST [Concomitant]
     Active Substance: ZOLEDRONIC ACID
  23. DIGOXIN [Concomitant]
     Active Substance: DIGOXIN
  24. OMEPRAZOLE [Concomitant]
     Active Substance: OMEPRAZOLE
  25. HYDROXYZINE HYDROCHLORIDE [Concomitant]
     Active Substance: HYDROXYZINE HYDROCHLORIDE
  26. ASPIRIN [Concomitant]
     Active Substance: ASPIRIN
  27. ZYRTEC [Concomitant]
     Active Substance: CETIRIZINE HYDROCHLORIDE
  28. ONDANSETRON HYDROCHLORIDE [Concomitant]
     Active Substance: ONDANSETRON HYDROCHLORIDE

REACTIONS (3)
  - Drug intolerance [Not Recovered/Not Resolved]
  - Illness [Unknown]
  - Gait inability [Unknown]

NARRATIVE: CASE EVENT DATE: 20241201
